FAERS Safety Report 9220017 (Version 1)
Quarter: 2013Q2

REPORT INFORMATION
  Report Type: Spontaneous
  Country: FR (occurrence: FR)
  Receive Date: 20130409
  Receipt Date: 20130409
  Transmission Date: 20140414
  Serious: Yes (Hospitalization, Other)
  Sender: FDA-Public Use
  Company Number: FR-JNJFOC-20130403145

PATIENT
  Age: 73 Year
  Sex: Male

DRUGS (1)
  1. XARELTO [Suspect]
     Indication: PRODUCT USED FOR UNKNOWN INDICATION
     Route: 048
     Dates: start: 20130201, end: 20130207

REACTIONS (3)
  - Purpura [Recovered/Resolved]
  - Rash [Recovered/Resolved]
  - Eosinophilia [Recovered/Resolved]
